FAERS Safety Report 23498531 (Version 1)
Quarter: 2024Q1

REPORT INFORMATION
  Report Type: Spontaneous
  Country: US (occurrence: None)
  Receive Date: 20240208
  Receipt Date: 20240208
  Transmission Date: 20240410
  Serious: Yes (Hospitalization)
  Sender: FDA-Public Use
  Company Number: None

PATIENT
  Age: 71 Year
  Sex: Male
  Weight: 104.5 kg

DRUGS (2)
  1. SPRYCEL [Suspect]
     Active Substance: DASATINIB
  2. VINCRISTIEN SULFATE 2MG [Concomitant]

REACTIONS (1)
  - Pulmonary congestion [None]

NARRATIVE: CASE EVENT DATE: 20240118
